FAERS Safety Report 8389624-7 (Version None)
Quarter: 2012Q2

REPORT INFORMATION
  Report Type: 
  Country: None (occurrence: None)
  Receive Date: 20120528
  Receipt Date: 20120521
  Transmission Date: 20120825
  Serious: Yes (Life-Threatening)
  Sender: FDA-Public Use
  Company Number: DE-ROCHE-1072264

PATIENT
  Age: 80 Year
  Sex: Female

DRUGS (1)
  1. ALTEPLASE [Suspect]
     Indication: ISCHAEMIC STROKE
     Route: 040
     Dates: start: 20111114

REACTIONS (3)
  - DYSPNOEA [None]
  - ANGIOEDEMA [None]
  - HYPERSENSITIVITY [None]
